FAERS Safety Report 25051829 (Version 4)
Quarter: 2025Q3

REPORT INFORMATION
  Report Type: Spontaneous
  Country: JP (occurrence: JP)
  Receive Date: 20250307
  Receipt Date: 20250701
  Transmission Date: 20251021
  Serious: Yes (Other)
  Sender: MERCK SHARP & DOHME LLC
  Company Number: JP-MSD-M2023-00597

PATIENT
  Age: 74 Year
  Sex: Female

DRUGS (8)
  1. KEYTRUDA [Suspect]
     Active Substance: PEMBROLIZUMAB
     Indication: Uterine cancer
     Dosage: DOSE DESCRIPTION : 200 MILLIGRAM, Q3W?DAILY DOSE : 9.4 MILLIGRAM?REGIMEN DOSE : 2000  MILLIGRAM
     Route: 041
     Dates: start: 20221220, end: 20230718
  2. KEYTRUDA [Suspect]
     Active Substance: PEMBROLIZUMAB
     Indication: Uterine cancer
     Dosage: DOSE DESCRIPTION : 200 MILLIGRAM, Q3W?DAILY DOSE : 9.4 MILLIGRAM?REGIMEN DOSE : 2200  MILLIGRAM
     Route: 041
     Dates: start: 20230919, end: 20240423
  3. LENVATINIB MESYLATE [Suspect]
     Active Substance: LENVATINIB MESYLATE
     Indication: Uterine cancer
     Dosage: DOSE DESCRIPTION : 20 MILLIGRAM, QD?DAILY DOSE : 20 MILLIGRAM?REGIMEN DOSE : 260  MILLIGRAM
     Route: 048
     Dates: start: 20221220, end: 20230101
  4. LENVATINIB MESYLATE [Suspect]
     Active Substance: LENVATINIB MESYLATE
     Indication: Uterine cancer
     Dosage: DOSE DESCRIPTION : 10 MILLIGRAM, QD?DAILY DOSE : 10 MILLIGRAM?REGIMEN DOSE : 20  MILLIGRAM
     Route: 048
     Dates: start: 20230102, end: 20230103
  5. LENVATINIB MESYLATE [Suspect]
     Active Substance: LENVATINIB MESYLATE
     Indication: Uterine cancer
     Dosage: DOSE DESCRIPTION : 14 MILLIGRAM, QD?DAILY DOSE : 14 MILLIGRAM?REGIMEN DOSE : 14  MILLIGRAM
     Route: 048
     Dates: start: 20230228, end: 20230228
  6. EDOXABAN TOSYLATE [Concomitant]
     Active Substance: EDOXABAN TOSYLATE
     Indication: Atrial fibrillation
     Dosage: DOSE DESCRIPTION : 30 MILLIGRAM, QD?DAILY DOSE : 30 MILLIGRAM
     Route: 048
     Dates: start: 20220915
  7. HEPARINOID [Concomitant]
     Indication: Rash
     Route: 050
  8. VIVIANT [Concomitant]
     Active Substance: BAZEDOXIFENE
     Indication: Osteoporosis
     Dosage: DOSE DESCRIPTION : 20 MILLIGRAM, QD?DAILY DOSE : 20 MILLIGRAM
     Route: 048

REACTIONS (12)
  - Arrhythmia [Unknown]
  - Pulmonary congestion [Unknown]
  - Cardiac failure [Recovered/Resolved]
  - Hyperthyroidism [Recovered/Resolved]
  - Immune-mediated dermatitis [Recovered/Resolved]
  - Swelling of eyelid [Unknown]
  - Conjunctival hyperaemia [Unknown]
  - Palmar-plantar erythrodysaesthesia syndrome [Recovered/Resolved]
  - Hypersensitivity [Recovering/Resolving]
  - Product use issue [Unknown]
  - Rash [Unknown]
  - Thyroid disorder [Unknown]

NARRATIVE: CASE EVENT DATE: 20230101
